FAERS Safety Report 7691259-6 (Version None)
Quarter: 2011Q3

REPORT INFORMATION
  Report Type: 
  Country: None (occurrence: None)
  Receive Date: 20110815
  Receipt Date: 20110803
  Transmission Date: 20111222
  Serious: Yes (Life-Threatening, Hospitalization, Other)
  Sender: FDA-Public Use
  Company Number: 2011P1008123

PATIENT
  Age: 49 Year
  Sex: Male

DRUGS (2)
  1. ALBENZA [Suspect]
     Indication: FILARIASIS LYMPHATIC
     Dosage: 1 TABLET;
     Dates: start: 20110705
  2. MECTIZAN [Suspect]
     Indication: FILARIASIS LYMPHATIC
     Dosage: 4 TABLETS;
     Dates: start: 20110705

REACTIONS (8)
  - APHASIA [None]
  - ASTHENIA [None]
  - PAIN [None]
  - COMA [None]
  - VERTIGO [None]
  - SPEECH DISORDER [None]
  - HEADACHE [None]
  - URINARY INCONTINENCE [None]
